FAERS Safety Report 20462020 (Version 1)
Quarter: 2022Q1

REPORT INFORMATION
  Report Type: Spontaneous
  Country: ES (occurrence: ES)
  Receive Date: 20220211
  Receipt Date: 20220211
  Transmission Date: 20220423
  Serious: Yes (Other)
  Sender: FDA-Public Use
  Company Number: ES-LUPIN PHARMACEUTICALS INC.-2022-01791

PATIENT
  Age: 64 Year
  Sex: Male

DRUGS (6)
  1. HYDROXYCHLOROQUINE [Suspect]
     Active Substance: HYDROXYCHLOROQUINE
     Indication: Cutaneous lupus erythematosus
     Dosage: UNK
     Route: 065
  2. AZATHIOPRINE [Suspect]
     Active Substance: AZATHIOPRINE
     Indication: Cutaneous lupus erythematosus
     Dosage: UNK
     Route: 065
  3. TACROLIMUS [Suspect]
     Active Substance: TACROLIMUS
     Indication: Cutaneous lupus erythematosus
     Dosage: UNK
     Route: 061
  4. PIMECROLIMUS [Suspect]
     Active Substance: PIMECROLIMUS
     Indication: Cutaneous lupus erythematosus
     Dosage: UNK
     Route: 061
  5. METHOTREXATE [Concomitant]
     Active Substance: METHOTREXATE
     Indication: Meningoencephalitis herpetic
     Dosage: UNK
     Route: 065
     Dates: start: 2019
  6. THALIDOMIDE [Concomitant]
     Active Substance: THALIDOMIDE
     Indication: Meningoencephalitis herpetic
     Dosage: UNK
     Route: 065
     Dates: start: 2019

REACTIONS (1)
  - Drug ineffective [Unknown]
